FAERS Safety Report 16274255 (Version 1)
Quarter: 2019Q2

REPORT INFORMATION
  Report Type: Spontaneous
  Country: US (occurrence: US)
  Receive Date: 20190504
  Receipt Date: 20190504
  Transmission Date: 20190711
  Serious: Yes (Life-Threatening, Hospitalization, Other)
  Sender: FDA-Public Use
  Company Number: US-AUROBINDO-AUR-APL-2019-023744

PATIENT

DRUGS (3)
  1. FLECAINIDE [Suspect]
     Active Substance: FLECAINIDE
     Indication: VENTRICULAR TACHYCARDIA
     Dosage: 150 MILLIGRAM, DAILY (2.5 MG/KG/DAY)
     Route: 065
  2. NADOLOL. [Suspect]
     Active Substance: NADOLOL
     Dosage: 30 MILLIGRAM, DAILY (0.5 MG/KG/DAY)
     Route: 065
  3. NADOLOL. [Suspect]
     Active Substance: NADOLOL
     Indication: VENTRICULAR TACHYCARDIA
     Dosage: HIGHER DOSES
     Route: 065

REACTIONS (1)
  - Drug ineffective [Recovering/Resolving]
